FAERS Safety Report 11271954 (Version 1)
Quarter: 2015Q3

REPORT INFORMATION
  Report Type: Spontaneous
  Country: US (occurrence: None)
  Receive Date: 20150713
  Receipt Date: 20150713
  Transmission Date: 20151125
  Serious: No
  Sender: FDA-Public Use
  Company Number: None

PATIENT
  Age: 52 Year
  Sex: Female

DRUGS (18)
  1. AMPYRA [Suspect]
     Active Substance: DALFAMPRIDINE
     Indication: MULTIPLE SCLEROSIS
     Route: 048
     Dates: start: 201011
  2. HYDROCHLOROTHIAZIDE (ESIDRIX/HYDRODIURIL) [Concomitant]
  3. LIORESAL [Concomitant]
     Active Substance: BACLOFEN
  4. ATENOLOL (TENORMIN) [Concomitant]
  5. RANITIDINE (ZANTAC) [Concomitant]
  6. OLANZAPINE (ZYPREXA) [Concomitant]
  7. HYDROXYZINE HCL (ATARAX) [Concomitant]
  8. NEOMYCIN-POLYMYXIN B-DEXAMETHASONE (MAXITROL) [Concomitant]
  9. MOTRIN [Concomitant]
     Active Substance: IBUPROFEN
  10. OXYBUTYNIN (DITROPAN) [Concomitant]
  11. CYCLOMINE (BENTYL) [Concomitant]
  12. HYDROCODONE-ACETAMINOPHEN (NORCO) [Concomitant]
  13. MEDROXYPROGESTERONE (PROVERA) [Concomitant]
  14. FLUOCINONIDE (LIDEX/FLUEX) [Concomitant]
  15. VENLAFAXINE (EFFEXOR XR) [Concomitant]
  16. TRAZODONE (DESYREL) [Concomitant]
  17. WELLBUTRIN [Concomitant]
     Active Substance: BUPROPION HYDROCHLORIDE
  18. ESTRADIOL (ESTRACE) [Concomitant]

REACTIONS (3)
  - Laboratory test abnormal [None]
  - Neuropathy peripheral [None]
  - Inflammation [None]

NARRATIVE: CASE EVENT DATE: 20150622
